FAERS Safety Report 15010836 (Version 1)
Quarter: 2018Q2

REPORT INFORMATION
  Report Type: Spontaneous
  Country: GB (occurrence: GB)
  Receive Date: 20180614
  Receipt Date: 20180614
  Transmission Date: 20180711
  Serious: Yes (Hospitalization)
  Sender: FDA-Public Use
  Company Number: GB-BIOGEN-2018BI00593981

PATIENT
  Sex: Female

DRUGS (1)
  1. TECFIDERA [Suspect]
     Active Substance: DIMETHYL FUMARATE
     Indication: MULTIPLE SCLEROSIS
     Route: 048
     Dates: start: 20151104

REACTIONS (11)
  - Motor dysfunction [Unknown]
  - Back disorder [Unknown]
  - Muscle spasms [Unknown]
  - Confusional state [Unknown]
  - Cellulitis [Unknown]
  - Internal haemorrhage [Unknown]
  - Chest injury [Unknown]
  - Malaise [Unknown]
  - Fall [Recovered/Resolved]
  - Peripheral swelling [Unknown]
  - Musculoskeletal disorder [Unknown]
